FAERS Safety Report 4597122-1 (Version None)
Quarter: 2005Q1

REPORT INFORMATION
  Report Type: 
  Country: None (occurrence: None)
  Receive Date: 20050301
  Receipt Date: 20041118
  Transmission Date: 20050727
  Serious: Yes (Death)
  Sender: FDA-Public Use
  Company Number: 2004239665JP

PATIENT
  Age: 60 Year
  Sex: Male

DRUGS (1)
  1. SOLU-MEDROL [Suspect]
     Indication: SHOCK
     Dosage: 1000 MG, INTRAVENOUS
     Route: 042
     Dates: start: 20010309, end: 20010309

REACTIONS (9)
  - ANAPHYLACTIC SHOCK [None]
  - CONTRAST MEDIA REACTION [None]
  - CYSTITIS [None]
  - DISSEMINATED INTRAVASCULAR COAGULATION [None]
  - GLUCOSE TOLERANCE IMPAIRED [None]
  - HAEMODIALYSIS [None]
  - MULTI-ORGAN FAILURE [None]
  - PYELONEPHRITIS ACUTE [None]
  - STAPHYLOCOCCAL SEPSIS [None]
